FAERS Safety Report 5976845-3 (Version None)
Quarter: 2008Q4

REPORT INFORMATION
  Report Type: 
  Country: None (occurrence: None)
  Receive Date: 20081203
  Receipt Date: 20080214
  Transmission Date: 20090506
  Serious: No
  Sender: FDA-Public Use
  Company Number: US-AMGEN-KDL262720

PATIENT
  Sex: Female
  Weight: 114 kg

DRUGS (3)
  1. ENBREL [Suspect]
     Indication: PSORIATIC ARTHROPATHY
     Route: 058
     Dates: start: 20060323
  2. TRAZODONE HCL [Concomitant]
     Dates: start: 20050623
  3. VITAMIN B-12 [Concomitant]
     Dates: start: 20050623

REACTIONS (2)
  - BLOOD IRON ABNORMAL [None]
  - LIVER FUNCTION TEST ABNORMAL [None]
